FAERS Safety Report 12844427 (Version 2)
Quarter: 2017Q4

REPORT INFORMATION
  Report Type: Spontaneous
  Country: US (occurrence: US)
  Receive Date: 20161013
  Receipt Date: 20171003
  Transmission Date: 20180320
  Serious: No
  Sender: FDA-Public Use
  Company Number: US-ROCHE-1753545

PATIENT
  Age: 77 Year
  Sex: Male

DRUGS (3)
  1. ZELBORAF [Suspect]
     Active Substance: VEMURAFENIB
     Indication: MALIGNANT MELANOMA
     Dosage: 4 TABS BID
     Route: 048
     Dates: start: 201603
  2. ZELBORAF [Suspect]
     Active Substance: VEMURAFENIB
     Dosage: 4 TABS BID
     Route: 048
     Dates: start: 20151220
  3. ZELBORAF [Suspect]
     Active Substance: VEMURAFENIB
     Dosage: 4 TABS BID
     Route: 048

REACTIONS (7)
  - Oedema peripheral [Unknown]
  - Burning sensation [Unknown]
  - Alopecia [Unknown]
  - Rash [Unknown]
  - Myalgia [Unknown]
  - Acne [Recovered/Resolved]
  - Chills [Unknown]

NARRATIVE: CASE EVENT DATE: 20161220
